FAERS Safety Report 9295355 (Version 1)
Quarter: 2013Q2

REPORT INFORMATION
  Report Type: Spontaneous
  Country: GB (occurrence: GB)
  Receive Date: 20130517
  Receipt Date: 20130517
  Transmission Date: 20140414
  Serious: Yes (Other)
  Sender: FDA-Public Use
  Company Number: GB-ROCHE-1225159

PATIENT
  Age: 47 Year
  Sex: Female

DRUGS (5)
  1. XOLAIR [Suspect]
     Indication: PRODUCT USED FOR UNKNOWN INDICATION
     Route: 058
     Dates: start: 20110401, end: 20130410
  2. TIOTROPIUM BROMIDE [Concomitant]
  3. SYMBICORT [Concomitant]
  4. CETRIZINE [Concomitant]
  5. METFORMIN HYDROCHLORIDE [Concomitant]
     Route: 065

REACTIONS (3)
  - Musculoskeletal pain [Recovering/Resolving]
  - Arthralgia [Recovering/Resolving]
  - Myositis [Recovering/Resolving]
